FAERS Safety Report 6168760-X (Version None)
Quarter: 2009Q2

REPORT INFORMATION
  Report Type: 
  Country: None (occurrence: None)
  Receive Date: 20090427
  Receipt Date: 20090416
  Transmission Date: 20091009
  Serious: Yes (Death, Hospitalization)
  Sender: FDA-Public Use
  Company Number: US-BAXTER-2009BH006210

PATIENT
  Age: 42 Year
  Sex: Female
  Weight: 133 kg

DRUGS (19)
  1. HEPARIN SODIUM INJECTION [Suspect]
     Indication: DEEP VEIN THROMBOSIS
     Route: 065
     Dates: start: 20080320, end: 20080320
  2. HEPARIN SODIUM INJECTION [Suspect]
     Route: 065
     Dates: start: 20080320, end: 20080321
  3. HEPARIN SODIUM INJECTION [Suspect]
     Route: 065
     Dates: start: 20080405, end: 20080405
  4. HEPARIN [Suspect]
     Indication: DEEP VEIN THROMBOSIS
     Route: 042
     Dates: start: 20080320, end: 20080320
  5. HEPARIN [Suspect]
     Route: 042
     Dates: start: 20080405, end: 20080407
  6. FOLIC ACID [Concomitant]
     Indication: DRUG USE FOR UNKNOWN INDICATION
     Route: 048
  7. HALOPERIDOL [Concomitant]
     Indication: AGITATION
     Route: 048
  8. HYOSCYAMINE SULFATE [Concomitant]
     Indication: DRUG USE FOR UNKNOWN INDICATION
     Route: 048
  9. FERROUS SULFATE TAB [Concomitant]
     Indication: DRUG USE FOR UNKNOWN INDICATION
     Route: 048
  10. LANTUS [Concomitant]
     Indication: DRUG USE FOR UNKNOWN INDICATION
     Route: 058
  11. NOVOLOG [Concomitant]
     Indication: DRUG USE FOR UNKNOWN INDICATION
     Route: 058
  12. PEPCID [Concomitant]
     Indication: DRUG USE FOR UNKNOWN INDICATION
     Route: 048
  13. PHENERGAN [Concomitant]
     Indication: NAUSEA
     Route: 048
  14. PREDNISONE [Concomitant]
     Indication: DRUG USE FOR UNKNOWN INDICATION
     Route: 048
  15. VICODIN [Concomitant]
     Indication: PAIN
     Route: 048
  16. ESOMEPRAZOLE [Concomitant]
     Indication: PROPHYLAXIS AGAINST GASTROINTESTINAL ULCER
     Route: 040
  17. PROPOFOL [Concomitant]
     Indication: SEDATION
     Route: 042
  18. SOLU-MEDROL [Concomitant]
     Indication: DRUG USE FOR UNKNOWN INDICATION
     Route: 042
  19. EPOGEN [Concomitant]
     Indication: DRUG USE FOR UNKNOWN INDICATION
     Route: 058
     Dates: start: 20080321, end: 20080321

REACTIONS (8)
  - DEEP VEIN THROMBOSIS [None]
  - DIABETES MELLITUS [None]
  - ENTEROCOLITIS HAEMORRHAGIC [None]
  - PULMONARY EMBOLISM [None]
  - RECTAL HAEMORRHAGE [None]
  - REFUSAL OF TREATMENT BY PATIENT [None]
  - SEPTIC SHOCK [None]
  - THROMBOCYTOPENIA [None]
